FAERS Safety Report 17333491 (Version 1)
Quarter: 2020Q1

REPORT INFORMATION
  Report Type: Spontaneous
  Country: US (occurrence: US)
  Receive Date: 20200111
  Receipt Date: 20200111
  Transmission Date: 20200409
  Serious: Yes (Hospitalization)
  Sender: FDA-Public Use
  Company Number: None

PATIENT
  Age: 14 Year
  Sex: Male
  Weight: 47.2 kg

DRUGS (5)
  1. PREDNISONE. [Suspect]
     Active Substance: PREDNISONE
     Dates: end: 20200106
  2. MERCAPTOPURINE. [Suspect]
     Active Substance: MERCAPTOPURINE
     Dates: end: 20200101
  3. METHOTREXATE. [Suspect]
     Active Substance: METHOTREXATE
     Dates: end: 20200102
  4. VINCRISTINE SULFATE. [Suspect]
     Active Substance: VINCRISTINE SULFATE
     Dates: end: 20200102
  5. GLEEVEC [Suspect]
     Active Substance: IMATINIB MESYLATE
     Dates: end: 20200106

REACTIONS (9)
  - Syncope [None]
  - Dyspnoea [None]
  - Febrile neutropenia [None]
  - Fatigue [None]
  - Colitis [None]
  - Pyrexia [None]
  - Sepsis [None]
  - Bacterial infection [None]
  - Loss of consciousness [None]

NARRATIVE: CASE EVENT DATE: 20200106
